FAERS Safety Report 5065419-7 (Version None)
Quarter: 2006Q3

REPORT INFORMATION
  Report Type: 
  Country: None (occurrence: None)
  Receive Date: 20060725
  Receipt Date: 20060705
  Transmission Date: 20061208
  Serious: Yes (Other)
  Sender: FDA-Public Use
  Company Number: US200607000978

PATIENT
  Age: 16 Year
  Sex: Male

DRUGS (4)
  1. STRATTERA [Suspect]
     Indication: ATTENTION DEFICIT/HYPERACTIVITY DISORDER
     Dosage: 40 MG, DAILY 1/D)
     Dates: start: 20050801, end: 20060513
  2. ALBUTEROL [Concomitant]
  3. ZYRTEC [Concomitant]
  4. CLARITIN /USA/ (LORATADINE) [Concomitant]

REACTIONS (6)
  - DEHYDRATION [None]
  - GRAND MAL CONVULSION [None]
  - INSOMNIA [None]
  - LOSS OF CONSCIOUSNESS [None]
  - MEMORY IMPAIRMENT [None]
  - SOMNOLENCE [None]
